FAERS Safety Report 6091979-3 (Version None)
Quarter: 2009Q1

REPORT INFORMATION
  Report Type: 
  Country: None (occurrence: None)
  Receive Date: 20090225
  Receipt Date: 20081119
  Transmission Date: 20090719
  Serious: No
  Sender: FDA-Public Use
  Company Number: A0757248A

PATIENT
  Age: 32 Year
  Sex: Male

DRUGS (5)
  1. VALTREX [Suspect]
     Dosage: 500MG TWICE PER DAY
     Route: 048
     Dates: start: 20081110
  2. ASCORBIC ACID [Concomitant]
  3. ZINC [Concomitant]
  4. ALOE VERA [Concomitant]
     Route: 061
  5. LYSINE [Concomitant]

REACTIONS (1)
  - DRUG INEFFECTIVE [None]
